FAERS Safety Report 18248069 (Version 1)
Quarter: 2020Q3

REPORT INFORMATION
  Report Type: Spontaneous
  Country: US (occurrence: US)
  Receive Date: 20200909
  Receipt Date: 20200909
  Transmission Date: 20201103
  Serious: No
  Sender: FDA-Public Use
  Company Number: US-PERRIGO-20US008751

PATIENT
  Age: 66 Year
  Sex: Female
  Weight: 64.4 kg

DRUGS (9)
  1. ALBUTEROL SULFATE. [Suspect]
     Active Substance: ALBUTEROL SULFATE
     Dosage: UNKNOWN, 1 TO 2 TIMES DAILY, PRN
     Route: 055
     Dates: start: 20200612, end: 20200615
  2. CALTRATE                           /00944201/ [Concomitant]
     Active Substance: CALCIUM CARBONATE\CHOLECALCIFEROL
     Indication: OSTEOPENIA
     Dosage: UNK
     Route: 065
  3. LORATADINE. [Concomitant]
     Active Substance: LORATADINE
     Indication: HYPERSENSITIVITY
     Dosage: 10 MG, UNKNOWN
     Route: 065
     Dates: start: 20200605
  4. ADVIL PM [Concomitant]
     Active Substance: DIPHENHYDRAMINE CITRATE\IBUPROFEN
     Indication: INSOMNIA
  5. ESTRADIOL. [Concomitant]
     Active Substance: ESTRADIOL
     Indication: HORMONE REPLACEMENT THERAPY
     Dosage: UNK
     Route: 065
     Dates: start: 2018
  6. VITAMINS                           /90003601/ [Concomitant]
     Active Substance: VITAMINS
     Indication: SUPPLEMENTATION THERAPY
     Dosage: UNK
     Route: 048
     Dates: start: 2015
  7. ALBUTEROL SULFATE. [Suspect]
     Active Substance: ALBUTEROL SULFATE
     Indication: DYSPNOEA
     Dosage: 180 MCG, 1 TO 2 TIMES DAILY, PRN
     Route: 055
     Dates: start: 20200611, end: 20200612
  8. ALBUTEROL SULFATE. [Suspect]
     Active Substance: ALBUTEROL SULFATE
     Indication: COUGH
     Dosage: 180 MCG, QD
     Route: 055
     Dates: start: 20200606, end: 20200610
  9. ADVIL PM [Concomitant]
     Active Substance: DIPHENHYDRAMINE CITRATE\IBUPROFEN
     Indication: BACK PAIN
     Dosage: UNK
     Route: 065

REACTIONS (4)
  - Accidental exposure to product [Recovered/Resolved]
  - Device delivery system issue [Recovered/Resolved]
  - Therapeutic product effect decreased [Unknown]
  - Incorrect dose administered [Recovered/Resolved]

NARRATIVE: CASE EVENT DATE: 20200612
